FAERS Safety Report 8844890 (Version 1)
Quarter: 2012Q4

REPORT INFORMATION
  Report Type: 
  Country: US (occurrence: US)
  Receive Date: 20121017
  Receipt Date: 20121017
  Transmission Date: 20130627
  Serious: No
  Sender: FDA-Public Use
  Company Number: US-VERTEX PHARMACEUTICAL INC.-2012-022564

PATIENT
  Age: 51 None
  Sex: Male

DRUGS (3)
  1. VX-950 [Suspect]
     Indication: HEPATITIS C
     Dosage: 750 mg, tid
     Route: 048
     Dates: start: 20120720
  2. PEGASYS [Concomitant]
     Indication: HEPATITIS C
     Dosage: 180 ?g, UNK
     Dates: start: 20120720
  3. RIBAVIRIN [Concomitant]
     Indication: HEPATITIS C
     Dosage: 600 mg in AM, 400 mg in PM
     Route: 048
     Dates: start: 20120720

REACTIONS (7)
  - Influenza like illness [Unknown]
  - Dyspnoea [Unknown]
  - Vision blurred [Unknown]
  - Affect lability [Unknown]
  - Alopecia [Unknown]
  - Haemoglobin decreased [Unknown]
  - Nausea [Unknown]
